FAERS Safety Report 8282216-X (Version None)
Quarter: 2012Q2

REPORT INFORMATION
  Report Type: 
  Country: None (occurrence: None)
  Receive Date: 20120413
  Receipt Date: 20120407
  Transmission Date: 20120825
  Serious: Yes (Other)
  Sender: FDA-Public Use
  Company Number: PHHY2012TR030086

PATIENT
  Sex: Male
  Weight: 64 kg

DRUGS (5)
  1. AFINITOR [Suspect]
     Dosage: 5 MG, DAILY
     Dates: start: 20120221, end: 20120325
  2. TEFOR [Concomitant]
     Indication: BLOOD THYROID STIMULATING HORMONE INCREASED
     Dates: start: 20110309
  3. TRAMADOL HCL [Concomitant]
     Indication: PAIN
     Dates: start: 20100101
  4. AFINITOR [Suspect]
     Indication: METASTATIC RENAL CELL CARCINOMA
     Route: 048
     Dates: start: 20120101
  5. NEXIUM [Concomitant]
     Indication: GASTROOESOPHAGITIS

REACTIONS (10)
  - CARDIOMEGALY [None]
  - PLEURAL EFFUSION [None]
  - RIGHT VENTRICULAR FAILURE [None]
  - OEDEMA PERIPHERAL [None]
  - PERICARDIAL EFFUSION [None]
  - MITRAL VALVE INCOMPETENCE [None]
  - TRICUSPID VALVE INCOMPETENCE [None]
  - HEPATIC ENZYME INCREASED [None]
  - AORTIC VALVE INCOMPETENCE [None]
  - RESPIRATORY DISTRESS [None]
